FAERS Safety Report 4495327-1 (Version None)
Quarter: 2004Q4

REPORT INFORMATION
  Report Type: 
  Country: None (occurrence: None)
  Receive Date: 20041103
  Receipt Date: 20041025
  Transmission Date: 20050328
  Serious: Yes (Death, Hospitalization, Other)
  Sender: FDA-Public Use
  Company Number: 2004075213

PATIENT
  Age: 80 Year
  Sex: Female

DRUGS (2)
  1. LIPITOR [Suspect]
     Indication: CORONARY ARTERY DISEASE
     Dosage: 80 MG (80 MG , 1 IN1 1 D), ORAL
     Route: 048
     Dates: start: 20040709, end: 20040918
  2. COLCHICINE (COLCHICINE) [Suspect]
     Indication: GOUT
     Dosage: 1.2 MG (0.6 MG, 2 IN 1 D), ORAL
     Route: 048
     Dates: end: 20040918

REACTIONS (7)
  - ASTHENIA [None]
  - ATRIOVENTRICULAR BLOCK COMPLETE [None]
  - BLOOD CREATINE PHOSPHOKINASE INCREASED [None]
  - MUSCULAR WEAKNESS [None]
  - MYOPATHY [None]
  - RESPIRATORY DISORDER [None]
  - RHABDOMYOLYSIS [None]
